FAERS Safety Report 20642173 (Version 2)
Quarter: 2022Q2

REPORT INFORMATION
  Report Type: Report from Study
  Country: US (occurrence: US)
  Receive Date: 20220328
  Receipt Date: 20220527
  Transmission Date: 20220720
  Serious: Yes (Hospitalization, Other)
  Sender: FDA-Public Use
  Company Number: US-ABBVIE-22K-163-4329471-00

PATIENT
  Sex: Female

DRUGS (1)
  1. IMBRUVICA [Suspect]
     Active Substance: IBRUTINIB
     Indication: Chronic lymphocytic leukaemia
     Route: 048
     Dates: start: 201805, end: 20220212

REACTIONS (8)
  - Myocardial infarction [Unknown]
  - Arterial occlusive disease [Unknown]
  - Cholelithiasis [Unknown]
  - Biliary obstruction [Unknown]
  - Coronary arterial stent insertion [Unknown]
  - Cholecystitis infective [Unknown]
  - Cholelithiasis obstructive [Unknown]
  - White blood cell count increased [Unknown]
